FAERS Safety Report 25980449 (Version 1)
Quarter: 2025Q4

REPORT INFORMATION
  Report Type: Report from Study
  Country: AU (occurrence: AU)
  Receive Date: 20251030
  Receipt Date: 20251030
  Transmission Date: 20260117
  Serious: Yes (Death, Hospitalization)
  Sender: PURDUE
  Company Number: AU-PURDUE-USA-2025-0321732

PATIENT
  Age: 65 Year
  Sex: Male

DRUGS (2)
  1. HYDROMORPHONE HYDROCHLORIDE [Suspect]
     Active Substance: HYDROMORPHONE HYDROCHLORIDE
     Indication: Product used for unknown indication
     Dosage: UNK
     Route: 065
  2. PREGABALIN [Suspect]
     Active Substance: PREGABALIN
     Indication: Product used for unknown indication
     Dosage: UNK
     Route: 065

REACTIONS (8)
  - Allodynia [Fatal]
  - Delirium [Fatal]
  - Hyperaesthesia [Fatal]
  - Lymphoedema [Fatal]
  - Pain [Fatal]
  - Paresis [Fatal]
  - Respiratory depression [Fatal]
  - Sedation [Fatal]
